FAERS Safety Report 7497574-3 (Version None)
Quarter: 2011Q2

REPORT INFORMATION
  Report Type: 
  Country: None (occurrence: None)
  Receive Date: 20110523
  Receipt Date: 20110517
  Transmission Date: 20111010
  Serious: Yes (Life-Threatening, Hospitalization)
  Sender: FDA-Public Use
  Company Number: FR-PFIZER INC-2011105324

PATIENT
  Age: 62 Year
  Sex: Male
  Weight: 68 kg

DRUGS (11)
  1. ESCITALOPRAM [Concomitant]
  2. IMOVANE [Concomitant]
  3. ONDANSERTRON HYDROCHLORIDE [Concomitant]
     Indication: PREMEDICATION
     Dosage: UNK
     Dates: start: 20110302
  4. AVASTIN [Suspect]
     Indication: BRONCHIOLOALVEOLAR CARCINOMA
     Dosage: 510 MG, CYCLIC
     Route: 042
     Dates: start: 20110302, end: 20110325
  5. EMEND [Concomitant]
     Indication: PREMEDICATION
     Dosage: UNK
     Dates: start: 20110302
  6. SOLU-MEDROL [Suspect]
     Dosage: 120 MG, SINGLE, DAY 1
     Dates: start: 20110324
  7. EMEND [Concomitant]
     Dosage: UNK
     Dates: start: 20110302
  8. SOLU-MEDROL [Suspect]
     Dosage: 120 MG, SINGLE, DAY1
     Dates: start: 20110302
  9. SOLU-MEDROL [Suspect]
     Indication: PREMEDICATION
     Dosage: 120 MG, SINGLE
     Route: 042
     Dates: start: 20110428
  10. ATORVASTATIN [Concomitant]
  11. COTAREG [Concomitant]

REACTIONS (1)
  - AORTIC DISSECTION [None]
